FAERS Safety Report 13558128 (Version 1)
Quarter: 2017Q2

REPORT INFORMATION
  Report Type: Spontaneous
  Country: CR (occurrence: CR)
  Receive Date: 20170518
  Receipt Date: 20170518
  Transmission Date: 20170830
  Serious: Yes (Other)
  Sender: FDA-Public Use
  Company Number: CR-GLAXOSMITHKLINE-CR2017GSK071793

PATIENT
  Age: 32 Month
  Sex: Male

DRUGS (2)
  1. FLIXOTIDE 125 [Suspect]
     Active Substance: FLUTICASONE PROPIONATE
     Indication: ASTHMA PROPHYLAXIS
     Dosage: UNK, 1 INHALATION
     Route: 048
  2. AMISPED [Concomitant]
     Indication: PRODUCT USED FOR UNKNOWN INDICATION
     Dosage: UNK

REACTIONS (2)
  - Product use issue [Unknown]
  - Asthmatic crisis [Unknown]
